FAERS Safety Report 9423614 (Version 4)
Quarter: 2013Q3

REPORT INFORMATION
  Report Type: Spontaneous
  Country: JP (occurrence: JP)
  Receive Date: 20130726
  Receipt Date: 20130919
  Transmission Date: 20140515
  Serious: Yes (Hospitalization, Other)
  Sender: FDA-Public Use
  Company Number: JP-ASTRAZENECA-2013SE52968

PATIENT
  Age: 71 Year
  Sex: Male
  Weight: 39.4 kg

DRUGS (16)
  1. SEROQUEL [Suspect]
     Indication: SCHIZOPHRENIA
     Dosage: 150 MG DAILY (25 MG IN THE AFTERNOON AND 125 MG IN THE EVENING)
     Route: 048
     Dates: end: 20130710
  2. SEROQUEL [Suspect]
     Indication: VASCULAR DEMENTIA
     Dosage: 150 MG DAILY (25 MG IN THE AFTERNOON AND 125 MG IN THE EVENING)
     Route: 048
     Dates: end: 20130710
  3. ABILIFY [Suspect]
     Indication: BIPOLAR I DISORDER
     Dosage: 18 MG DAILY (3 MG IN THE DAYTIME AND 15 MG IN THE NIGHT).
     Route: 048
     Dates: end: 20130710
  4. ABILIFY [Suspect]
     Indication: VASCULAR DEMENTIA
     Dosage: 18 MG DAILY (3 MG IN THE DAYTIME AND 15 MG IN THE NIGHT).
     Route: 048
     Dates: end: 20130710
  5. HUMULIN [Suspect]
     Indication: BLOOD GLUCOSE INCREASED
     Route: 058
     Dates: start: 20130705, end: 20130705
  6. HUMULIN [Suspect]
     Indication: BLOOD GLUCOSE INCREASED
     Route: 058
     Dates: start: 20130705, end: 20130705
  7. HUMULIN [Suspect]
     Indication: BLOOD GLUCOSE INCREASED
     Route: 058
     Dates: start: 20130705, end: 20130705
  8. HUMULIN [Suspect]
     Indication: BLOOD GLUCOSE INCREASED
     Route: 058
     Dates: start: 20130706, end: 20130706
  9. HUMULIN [Suspect]
     Indication: BLOOD GLUCOSE INCREASED
     Route: 058
     Dates: start: 20130707, end: 20130707
  10. HUMULIN [Suspect]
     Indication: BLOOD GLUCOSE INCREASED
     Route: 058
     Dates: start: 20130708, end: 20130708
  11. HUMULIN [Suspect]
     Indication: BLOOD GLUCOSE INCREASED
     Route: 058
     Dates: start: 20130709
  12. ZOSYN [Concomitant]
     Indication: PNEUMONIA ASPIRATION
     Route: 065
     Dates: start: 20130703, end: 20130710
  13. RISPERIDONE [Concomitant]
     Indication: BIPOLAR I DISORDER
     Route: 065
     Dates: start: 20130711
  14. LITIOMAL [Concomitant]
     Indication: BIPOLAR I DISORDER
     Route: 065
     Dates: start: 20130711
  15. MAGNESIUM OXIDE [Concomitant]
     Route: 065
     Dates: end: 20130710
  16. DIOVAN [Concomitant]
     Route: 065
     Dates: end: 20130710

REACTIONS (5)
  - Blood glucose fluctuation [Recovered/Resolved]
  - Depressed level of consciousness [Unknown]
  - Impulsive behaviour [Unknown]
  - Restlessness [Unknown]
  - Pneumonia aspiration [Recovered/Resolved]
